FAERS Safety Report 22737380 (Version 4)
Quarter: 2025Q3

REPORT INFORMATION
  Report Type: Spontaneous
  Country: US (occurrence: US)
  Receive Date: 20230721
  Receipt Date: 20250902
  Transmission Date: 20251020
  Serious: Yes (Death, Other)
  Sender: FRESENIUS KABI
  Company Number: US-FreseniusKabi-FK202310728

PATIENT
  Age: 82 Year
  Sex: Male

DRUGS (2)
  1. FLUDARABINE [Suspect]
     Active Substance: FLUDARABINE PHOSPHATE
     Indication: Lymphodepletion
     Route: 042
     Dates: start: 20221031, end: 20221104
  2. CYCLOPHOSPHAMIDE [Suspect]
     Active Substance: CYCLOPHOSPHAMIDE
     Indication: Lymphodepletion
     Route: 042
     Dates: start: 20221029, end: 20221030

REACTIONS (2)
  - Death [Fatal]
  - Melanoma recurrent [Not Recovered/Not Resolved]

NARRATIVE: CASE EVENT DATE: 20230518
